FAERS Safety Report 9311914 (Version 2)
Quarter: 2013Q2

REPORT INFORMATION
  Report Type: Spontaneous
  Country: BR (occurrence: BR)
  Receive Date: 20130528
  Receipt Date: 20130531
  Transmission Date: 20140414
  Serious: Yes (Other)
  Sender: FDA-Public Use
  Company Number: PHHY2013BR052780

PATIENT
  Age: 13 Year
  Sex: Male
  Weight: 100 kg

DRUGS (2)
  1. RITALINA [Suspect]
     Dosage: 2 DF, DAILY
     Route: 048
  2. RITALINA [Suspect]
     Dosage: 1 DF, DAILY
     Route: 048
     Dates: end: 201301

REACTIONS (5)
  - Weight increased [Not Recovered/Not Resolved]
  - Performance status decreased [Not Recovered/Not Resolved]
  - Conduct disorder [Unknown]
  - Feeling abnormal [Unknown]
  - Aggression [Not Recovered/Not Resolved]
